FAERS Safety Report 8141585-1 (Version None)
Quarter: 2012Q1

REPORT INFORMATION
  Report Type: 
  Country: None (occurrence: None)
  Receive Date: 20120216
  Receipt Date: 20120209
  Transmission Date: 20120608
  Serious: Yes (Death, Life-Threatening, Hospitalization, Other)
  Sender: FDA-Public Use
  Company Number: AU-UCBSA-043489

PATIENT
  Age: 66 Year
  Sex: Female

DRUGS (6)
  1. CIMZIA [Suspect]
     Indication: RHEUMATOID ARTHRITIS
     Route: 058
     Dates: start: 20110607, end: 20110906
  2. BACTRIM [Concomitant]
     Indication: PNEUMOCYSTIS JIROVECI INFECTION
     Dates: start: 20110101
  3. ARAVA [Concomitant]
     Indication: ARTHRITIS
     Dates: start: 20110301
  4. PREDNISOLONE [Concomitant]
     Dosage: UP TO 10 MG PER DAY
     Route: 048
  5. METHOTREXATE [Concomitant]
     Route: 048
     Dates: start: 20000101, end: 20110301
  6. METHOTREXATE [Concomitant]
     Route: 048
     Dates: start: 20110301

REACTIONS (3)
  - ORGANISING PNEUMONIA [None]
  - DEATH [None]
  - DRUG INEFFECTIVE [None]
